FAERS Safety Report 6943842-0 (Version None)
Quarter: 2010Q3

REPORT INFORMATION
  Report Type: 
  Country: None (occurrence: None)
  Receive Date: 20100826
  Receipt Date: 20100819
  Transmission Date: 20110219
  Serious: Yes (Other)
  Sender: FDA-Public Use
  Company Number: A0871900A

PATIENT
  Age: 63 Year
  Sex: Female

DRUGS (4)
  1. TYKERB [Suspect]
     Indication: BREAST CANCER
     Dosage: 1000MG PER DAY
     Route: 065
     Dates: start: 20100709
  2. LISINOPRIL AND HYDROCHLOROTHIAZIDE [Concomitant]
     Dates: end: 20100701
  3. ARIMIDEX [Concomitant]
     Dates: start: 20100603
  4. HERCEPTIN [Concomitant]
     Dates: start: 20100625

REACTIONS (5)
  - BLOOD PRESSURE DECREASED [None]
  - DIARRHOEA [None]
  - FATIGUE [None]
  - PRURITUS [None]
  - SYNCOPE [None]
